FAERS Safety Report 24719377 (Version 2)
Quarter: 2025Q3

REPORT INFORMATION
  Report Type: Report from Study
  Country: US (occurrence: US)
  Receive Date: 20241210
  Receipt Date: 20250729
  Transmission Date: 20251021
  Serious: No
  Sender: AMGEN
  Company Number: US-AMGEN-USASP2024241412

PATIENT
  Sex: Female

DRUGS (2)
  1. TEPEZZA [Suspect]
     Active Substance: TEPROTUMUMAB-TRBW
     Indication: Toxic goitre
     Dosage: UNK UNK, Q3WK, (FIRST DOSE)
     Route: 065
     Dates: start: 20230308
  2. TEPEZZA [Suspect]
     Active Substance: TEPROTUMUMAB-TRBW
     Dosage: UNK UNK, Q3WK, (SECOND DOSE)
     Route: 065

REACTIONS (3)
  - Apraxia [Unknown]
  - Photophobia [Unknown]
  - Therapy interrupted [Unknown]
